FAERS Safety Report 4975106-9 (Version None)
Quarter: 2006Q2

REPORT INFORMATION
  Report Type: 
  Country: None (occurrence: None)
  Receive Date: 20060414
  Receipt Date: 20060414
  Transmission Date: 20061013
  Serious: Yes (Other)
  Sender: FDA-Public Use
  Company Number: None

PATIENT

DRUGS (3)
  1. METHLYCELLULOSE CAPLET (METHYLCELLULOSE) [Suspect]
     Indication: DIVERTICULITIS
     Dosage: ORAL
     Route: 048
     Dates: end: 20060201
  2. METHLYCELLULOSE SUSPENSION SUGAR FREE ORANGE  (METHYLCELLULOSE) [Suspect]
     Indication: DIVERTICULITIS
     Dosage: ORAL
     Route: 048
     Dates: start: 20050101
  3. LORATADINE [Concomitant]

REACTIONS (1)
  - RECTAL HAEMORRHAGE [None]
